FAERS Safety Report 19701512 (Version 7)
Quarter: 2021Q3

REPORT INFORMATION
  Report Type: Spontaneous
  Country: US (occurrence: US)
  Receive Date: 20210814
  Receipt Date: 20210911
  Transmission Date: 20211014
  Serious: No
  Sender: FDA-Public Use
  Company Number: US-UNITED THERAPEUTICS-UNT-2021-015208

PATIENT
  Age: 48 Year
  Sex: Female
  Weight: 43.08 kg

DRUGS (4)
  1. REMODULIN [Suspect]
     Active Substance: TREPROSTINIL
     Dosage: 0.0035 ?G/KG, CONTINUING
     Route: 058
     Dates: start: 20210901
  2. REMODULIN [Suspect]
     Active Substance: TREPROSTINIL
     Dosage: 0.002 ?G/KG, CONTINUING
     Route: 058
     Dates: start: 2021
  3. REMODULIN [Suspect]
     Active Substance: TREPROSTINIL
     Dosage: 0.0025 ?G/KG, CONTINUING
     Route: 058
     Dates: start: 2021
  4. REMODULIN [Suspect]
     Active Substance: TREPROSTINIL
     Indication: PULMONARY ARTERIAL HYPERTENSION
     Dosage: UNK, CONTINUING
     Route: 058
     Dates: start: 20210730

REACTIONS (21)
  - Device infusion issue [Unknown]
  - Headache [Recovered/Resolved]
  - Faeces discoloured [Recovered/Resolved]
  - Arthralgia [Unknown]
  - Device dislocation [Recovered/Resolved]
  - Chest pain [Unknown]
  - Infusion site haemorrhage [Unknown]
  - Abnormal faeces [Recovered/Resolved]
  - Hypotension [Recovered/Resolved]
  - Anaemia [Unknown]
  - Pyrexia [Unknown]
  - Confusional state [Unknown]
  - Hypertension [Unknown]
  - Dizziness [Unknown]
  - Pain in extremity [Unknown]
  - Pain [Unknown]
  - Diarrhoea [Unknown]
  - Nausea [Unknown]
  - Vomiting [Unknown]
  - Infusion site pain [Not Recovered/Not Resolved]
  - Initial insomnia [Unknown]

NARRATIVE: CASE EVENT DATE: 2021
